FAERS Safety Report 6300992-X (Version None)
Quarter: 2009Q3

REPORT INFORMATION
  Report Type: 
  Country: None (occurrence: None)
  Receive Date: 20090806
  Receipt Date: 20090806
  Transmission Date: 20100115
  Serious: Yes (Hospitalization)
  Sender: FDA-Public Use
  Company Number: None

PATIENT
  Age: 85 Year
  Sex: Male

DRUGS (1)
  1. ARGATROBAN [Suspect]
     Indication: DEEP VEIN THROMBOSIS
     Dosage: TITRATE IV
     Route: 042
     Dates: start: 20090729, end: 20090730

REACTIONS (2)
  - COAGULOPATHY [None]
  - GASTRIC HAEMORRHAGE [None]
